FAERS Safety Report 13707904 (Version 2)
Quarter: 2017Q3

REPORT INFORMATION
  Report Type: Spontaneous
  Country: US (occurrence: US)
  Receive Date: 20170630
  Receipt Date: 20170710
  Transmission Date: 20171127
  Serious: Yes (Other)
  Sender: FDA-Public Use
  Company Number: US-DSJP-DSU-2017-121058

PATIENT

DRUGS (6)
  1. WELCHOL [Interacting]
     Active Substance: COLESEVELAM HYDROCHLORIDE
     Dosage: 625 MG, QD
     Route: 048
     Dates: start: 20170626, end: 2017
  2. SOME TYPE OF MOTRIN [Concomitant]
     Indication: DIARRHOEA
     Dosage: UNK, QHS
     Route: 048
  3. LEVETIRACETAM. [Interacting]
     Active Substance: LEVETIRACETAM
     Indication: SEIZURE
     Dosage: UNK, BID
     Route: 048
     Dates: start: 2014
  4. DIOVAN [Concomitant]
     Active Substance: VALSARTAN
     Indication: HYPERTENSION
     Dosage: UNK
  5. WELCHOL [Suspect]
     Active Substance: COLESEVELAM HYDROCHLORIDE
     Indication: DIARRHOEA
     Dosage: 1250 MG, QD
     Route: 048
     Dates: start: 20170612, end: 201706
  6. WELCHOL [Interacting]
     Active Substance: COLESEVELAM HYDROCHLORIDE
     Dosage: 625 MG, UNK
     Route: 048
     Dates: start: 2017, end: 2017

REACTIONS (8)
  - Off label use [Not Recovered/Not Resolved]
  - Vision blurred [Unknown]
  - Incorrect dose administered [Not Recovered/Not Resolved]
  - Partial seizures [Recovered/Resolved]
  - Treatment noncompliance [Recovered/Resolved]
  - Weight decreased [Unknown]
  - Drug interaction [Not Recovered/Not Resolved]
  - Hypotension [Recovered/Resolved]

NARRATIVE: CASE EVENT DATE: 201706
